FAERS Safety Report 10304733 (Version 1)
Quarter: 2014Q3

REPORT INFORMATION
  Report Type: Spontaneous
  Country: US (occurrence: None)
  Receive Date: 20140710
  Receipt Date: 20140710
  Transmission Date: 20150326
  Serious: Yes (Other)
  Sender: FDA-Public Use
  Company Number: None

PATIENT
  Age: 59 Year
  Sex: Female

DRUGS (5)
  1. CYCLOBENZAPRINE [Suspect]
     Active Substance: CYCLOBENZAPRINE
  2. BACLOFEN. [Suspect]
     Active Substance: BACLOFEN
  3. LIDOCAINE. [Suspect]
     Active Substance: LIDOCAINE
  4. GABAPENTIN. [Suspect]
     Active Substance: GABAPENTIN
  5. FLURBIPROFEN. [Suspect]
     Active Substance: FLURBIPROFEN
     Indication: DIABETIC NEUROPATHY
     Route: 061

REACTIONS (1)
  - Medication error [None]

NARRATIVE: CASE EVENT DATE: 20140708
